FAERS Safety Report 14829124 (Version 3)
Quarter: 2019Q1

REPORT INFORMATION
  Report Type: Spontaneous
  Country: JP (occurrence: JP)
  Receive Date: 20180430
  Receipt Date: 20190215
  Transmission Date: 20190417
  Serious: Yes (Other)
  Sender: FDA-Public Use
  Company Number: JP-PFIZER INC-2018169756

PATIENT
  Age: 24 Year
  Sex: Female
  Weight: 43 kg

DRUGS (1)
  1. METHYLPREDNISOLONE. [Suspect]
     Active Substance: METHYLPREDNISOLONE
     Dosage: 24 MG, 1X/DAY
     Route: 048

REACTIONS (3)
  - Kyphosis [Recovered/Resolved]
  - Spinal compression fracture [Recovered/Resolved]
  - Osteoporosis [Recovering/Resolving]
